FAERS Safety Report 7876618-0 (Version None)
Quarter: 2011Q4

REPORT INFORMATION
  Report Type: 
  Country: None (occurrence: None)
  Receive Date: 20111031
  Receipt Date: 20100506
  Transmission Date: 20120403
  Serious: No
  Sender: FDA-Public Use
  Company Number: US-BAYER-201022025NA

PATIENT
  Age: 31 Year
  Sex: Female

DRUGS (1)
  1. AVELOX [Suspect]
     Dosage: UNK
     Dates: start: 20100401, end: 20100506

REACTIONS (2)
  - TREMOR [None]
  - ANXIETY [None]
